FAERS Safety Report 16154126 (Version 1)
Quarter: 2019Q2

REPORT INFORMATION
  Report Type: Spontaneous
  Country: US (occurrence: US)
  Receive Date: 20190403
  Receipt Date: 20190403
  Transmission Date: 20190711
  Serious: Yes (Other)
  Sender: FDA-Public Use
  Company Number: US-AMREGENT-20190575

PATIENT

DRUGS (1)
  1. INJECTAFER [Suspect]
     Active Substance: FERRIC CARBOXYMALTOSE
     Dosage: 500 MG
     Route: 041
     Dates: start: 2018

REACTIONS (11)
  - Sunburn [Unknown]
  - Neck pain [Unknown]
  - Muscle twitching [Unknown]
  - Initial insomnia [Unknown]
  - Neuralgia [Unknown]
  - Pain of skin [Unknown]
  - Nausea [Unknown]
  - Flushing [Unknown]
  - Nerve root injury cervical [Unknown]
  - Myalgia [Unknown]
  - Dyskinesia [Unknown]

NARRATIVE: CASE EVENT DATE: 2018
